FAERS Safety Report 23719250 (Version 1)
Quarter: 2024Q2

REPORT INFORMATION
  Report Type: Spontaneous
  Country: US (occurrence: None)
  Receive Date: 20240408
  Receipt Date: 20240408
  Transmission Date: 20240715
  Serious: No
  Sender: FDA-Public Use
  Company Number: None

PATIENT
  Age: 87 Year
  Sex: Female

DRUGS (1)
  1. MIEBO [Suspect]
     Active Substance: PERFLUOROHEXYLOCTANE
     Dosage: OTHER STRENGTH : 1.338 GM/ML ;?FREQUENCY : 4 TIMES A DAY;?
     Route: 047
     Dates: start: 20240123

REACTIONS (1)
  - Rash [None]

NARRATIVE: CASE EVENT DATE: 20240306
